FAERS Safety Report 5257904-X (Version None)
Quarter: 2007Q1

REPORT INFORMATION
  Report Type: 
  Country: None (occurrence: None)
  Receive Date: 20070307
  Receipt Date: 20061012
  Transmission Date: 20070707
  Serious: No
  Sender: FDA-Public Use
  Company Number: US-GLAXOSMITHKLINE-A0623391A

PATIENT
  Sex: Female

DRUGS (4)
  1. REQUIP [Suspect]
     Indication: RESTLESS LEGS SYNDROME
     Dosage: 1MG PER DAY
     Route: 048
     Dates: start: 20050101
  2. EFFEXOR [Concomitant]
  3. TOPAMAX [Concomitant]
  4. HORMONAL THERAPY [Concomitant]

REACTIONS (1)
  - DRUG INEFFECTIVE [None]
